FAERS Safety Report 7490059-X (Version None)
Quarter: 2011Q2

REPORT INFORMATION
  Report Type: 
  Country: None (occurrence: None)
  Receive Date: 20110519
  Receipt Date: 20110509
  Transmission Date: 20111010
  Serious: No
  Sender: FDA-Public Use
  Company Number: US-PFIZER INC-2010173528

PATIENT
  Sex: Female
  Weight: 68.038 kg

DRUGS (7)
  1. VITAMIN D [Concomitant]
     Dosage: UNK
  2. POTASSIUM [Concomitant]
     Dosage: UNK
  3. ZOLOFT [Concomitant]
     Dosage: UNK
  4. FLOLAN [Concomitant]
     Dosage: UNK
  5. PREDNISONE [Concomitant]
     Dosage: UNK
  6. REVATIO [Suspect]
     Dosage: 20 MG, 3X/DAY
     Dates: start: 20100901
  7. GLYBURIDE [Concomitant]
     Dosage: UNK

REACTIONS (2)
  - LARYNGITIS [None]
  - ALOPECIA [None]
